FAERS Safety Report 8592036-4 (Version None)
Quarter: 2012Q3

REPORT INFORMATION
  Report Type: 
  Country: None (occurrence: None)
  Receive Date: 20120814
  Receipt Date: 20120809
  Transmission Date: 20120928
  Serious: Yes (Hospitalization, Other)
  Sender: FDA-Public Use
  Company Number: PHHO2011JP02399

PATIENT
  Sex: Male
  Weight: 60 kg

DRUGS (37)
  1. ENALAPRIL MALEATE [Suspect]
     Indication: CARDIAC FAILURE
     Dosage: 10 MG, QD
     Route: 048
     Dates: start: 20101112, end: 20101209
  2. EPLERENONE [Concomitant]
     Dosage: 50 MG, DAILY
     Route: 048
     Dates: start: 20110317
  3. CARVEDILOL [Concomitant]
     Dosage: 2.5 MG, DAILY
     Dates: start: 20110630
  4. BLINDED NO TREATMENT RECEIVED [Suspect]
     Dosage: CODE NOT BROKEN
     Route: 048
     Dates: start: 20110630, end: 20120801
  5. LASIX [Concomitant]
     Dosage: 20 MG, DAILY
     Route: 048
  6. AZOPT [Concomitant]
     Indication: GLAUCOMA
     Dosage: 3 DF, UNK
     Dates: start: 20100202
  7. TRAVATAN Z [Concomitant]
     Indication: GLAUCOMA
     Dosage: 1 DF, UNK
     Route: 048
     Dates: start: 20100513
  8. DIART [Concomitant]
     Dosage: 15 MG, DAILY
     Route: 048
     Dates: start: 20120725
  9. PLETAL [Concomitant]
     Indication: CEREBRAL ARTERY EMBOLISM
     Dosage: 100 MG, UNK
     Route: 048
     Dates: start: 20100210
  10. WARFARIN SODIUM [Suspect]
     Dosage: 2 MG, UNK
     Route: 048
     Dates: start: 20110303
  11. WARFARIN SODIUM [Suspect]
     Dosage: 1 MG, UNK
     Route: 048
     Dates: start: 20110329
  12. LANSOPRAZOLE [Concomitant]
     Indication: GASTRITIS PROPHYLAXIS
     Dosage: 15 MG, UNK
     Route: 048
     Dates: start: 20080205
  13. ARICEPT [Concomitant]
     Indication: QUALITY OF LIFE DECREASED
     Dosage: 4 MG, UNK
     Route: 048
     Dates: start: 20120224
  14. HEPARIN CALCIUM [Concomitant]
  15. BLINDED ALISKIREN [Suspect]
     Indication: CARDIAC FAILURE
     Dosage: CODE NOT BROKEN
     Route: 048
     Dates: start: 20110127, end: 20110210
  16. BLINDED NO TREATMENT RECEIVED [Suspect]
     Indication: CARDIAC FAILURE
     Dosage: CODE NOT BROKEN
     Route: 048
     Dates: start: 20110127, end: 20110210
  17. ENALAPRIL MALEATE [Suspect]
     Dosage: 10 MG, QD
     Route: 048
     Dates: start: 20110106, end: 20110210
  18. WARFARIN SODIUM [Suspect]
     Dosage: 0.75 MG, UNK
     Route: 048
     Dates: start: 20110130
  19. WARFARIN SODIUM [Suspect]
     Dosage: 0.75 MG, UNK
     Route: 048
     Dates: start: 20110214, end: 20110302
  20. DABIGATRAN ETEXILATE [Concomitant]
     Indication: CEREBRAL ARTERY EMBOLISM
     Dosage: 150 MG, UNK
     Route: 048
     Dates: start: 20120524
  21. WARFARIN SODIUM [Suspect]
     Indication: CEREBRAL ARTERY EMBOLISM
     Dosage: 1.75 MG, UNK
     Route: 048
     Dates: start: 20100128, end: 20110129
  22. LASIX [Concomitant]
     Indication: CARDIAC FAILURE CHRONIC
     Dosage: 40 MG, DAILY
     Route: 048
     Dates: start: 20100501
  23. CARVEDILOL [Concomitant]
     Indication: CARDIAC FAILURE CHRONIC
     Dosage: UNK
     Route: 048
     Dates: start: 20100210
  24. DETANTOL [Concomitant]
     Dosage: UNK
     Route: 047
     Dates: start: 20110825
  25. BLINDED ALISKIREN [Suspect]
     Dosage: CODE NOT BROKEN
     Route: 048
     Dates: start: 20110630, end: 20120801
  26. ENALAPRIL MALEATE [Suspect]
     Dosage: 20 MG, QD
     Route: 048
     Dates: start: 20101209, end: 20110105
  27. SENNOSIDE [Concomitant]
     Indication: CONSTIPATION
     Dosage: 36 MG, UNK
     Dates: start: 20080529
  28. ALPRAZOLAM [Concomitant]
     Dosage: 0.4 MG, DAILY
     Route: 048
     Dates: start: 20110219
  29. AMIODARONE HYDROCHLORIDE [Concomitant]
     Indication: VENTRICULAR FIBRILLATION
     Dosage: 200 MG, UNK
     Route: 048
     Dates: start: 20100205
  30. ENALAPRIL MALEATE [Suspect]
     Dosage: CODE NOT BROKEN
     Route: 048
     Dates: start: 20110630, end: 20120801
  31. ALISKIREN [Suspect]
     Indication: CARDIAC FAILURE
     Dosage: 150 MG, QD
     Route: 048
     Dates: start: 20110107, end: 20110210
  32. CEPHADOL [Concomitant]
     Indication: DIZZINESS
     Dosage: 50 MG, UNK
     Dates: start: 20090409
  33. ALPRAZOLAM [Concomitant]
     Indication: GLAUCOMA
     Dosage: 0.4 MG, UNK
     Route: 048
     Dates: start: 20091119
  34. ENALAPRIL MALEATE [Suspect]
     Indication: CARDIAC FAILURE
     Dosage: CODE NOT BROKEN
     Route: 048
     Dates: start: 20110127, end: 20110210
  35. EPLERENONE [Concomitant]
     Indication: CARDIAC FAILURE CHRONIC
     Dosage: 100 MG, DAILY
     Route: 048
     Dates: start: 20100617
  36. LEVOTHYROXINE SODIUM [Concomitant]
     Indication: HYPOTHYROIDISM
     Dosage: 100 UG, UNK
     Route: 048
     Dates: start: 20100506
  37. DIART [Concomitant]
     Indication: CARDIAC FAILURE CHRONIC
     Dosage: 30 MG, DAILY
     Route: 048
     Dates: start: 20120210, end: 20120723

REACTIONS (16)
  - BLOOD UREA INCREASED [None]
  - BLOOD CREATININE INCREASED [None]
  - STREPTOCOCCAL INFECTION [None]
  - CHILLS [None]
  - DEHYDRATION [None]
  - RENAL FAILURE ACUTE [None]
  - RENAL IMPAIRMENT [None]
  - PYELONEPHRITIS ACUTE [None]
  - URINARY TRACT INFECTION [None]
  - HEADACHE [None]
  - ABDOMINAL PAIN [None]
  - CHOLANGITIS [None]
  - DECREASED APPETITE [None]
  - ASTHENIA [None]
  - ARTHRALGIA [None]
  - DYSURIA [None]
